FAERS Safety Report 7369836-1 (Version None)
Quarter: 2011Q1

REPORT INFORMATION
  Report Type: 
  Country: None (occurrence: None)
  Receive Date: 20110318
  Receipt Date: 20110318
  Transmission Date: 20110831
  Serious: Yes (Hospitalization)
  Sender: FDA-Public Use
  Company Number: None

PATIENT
  Sex: Male
  Weight: 87.3 kg

DRUGS (3)
  1. CYCLOPHOSPHAMIDE [Suspect]
     Dosage: 1240 MG
  2. PENTOSTATIN [Suspect]
     Dosage: 8.28 MG
  3. RITUXIMAB (MUAB C2B8 ANTI CD20, CHIMERIC) [Suspect]
     Dosage: 780 MG

REACTIONS (5)
  - MOUTH HAEMORRHAGE [None]
  - PUPIL FIXED [None]
  - HEART RATE INCREASED [None]
  - ATRIAL FIBRILLATION [None]
  - UNRESPONSIVE TO STIMULI [None]
